FAERS Safety Report 17009350 (Version 1)
Quarter: 2019Q4

REPORT INFORMATION
  Report Type: Spontaneous
  Country: US (occurrence: US)
  Receive Date: 20191108
  Receipt Date: 20191108
  Transmission Date: 20200122
  Serious: Yes (Hospitalization)
  Sender: FDA-Public Use
  Company Number: US-ASTRAZENECA-2019SF55897

PATIENT
  Sex: Male

DRUGS (3)
  1. LENVIMA [Concomitant]
     Active Substance: LENVATINIB
     Indication: HEPATOCELLULAR CARCINOMA
     Route: 048
     Dates: start: 20190429
  2. LACTULOSE. [Concomitant]
     Active Substance: LACTULOSE
  3. SEROQUEL [Suspect]
     Active Substance: QUETIAPINE FUMARATE
     Route: 048
     Dates: start: 201910

REACTIONS (3)
  - Bradycardia [Unknown]
  - Hepatic encephalopathy [Unknown]
  - Diarrhoea [Unknown]
